FAERS Safety Report 5456052-3 (Version None)
Quarter: 2007Q3

REPORT INFORMATION
  Report Type: 
  Country: None (occurrence: None)
  Receive Date: 20070918
  Receipt Date: 20070912
  Transmission Date: 20080115
  Serious: Yes (Hospitalization)
  Sender: FDA-Public Use
  Company Number: DE-ASTRAZENECA-2007PK01901

PATIENT
  Age: 18265 Day
  Sex: Female
  Weight: 79 kg

DRUGS (5)
  1. SEROQUEL [Suspect]
     Route: 048
     Dates: start: 20050101
  2. JATROSOM [Suspect]
     Route: 048
     Dates: start: 20020101
  3. QUILONUM RETARD [Suspect]
     Route: 048
     Dates: start: 20020101
  4. RAMIPRIL [Concomitant]
     Route: 048
  5. ZOPICLON [Concomitant]

REACTIONS (3)
  - LIVER DISORDER [None]
  - OEDEMA PERIPHERAL [None]
  - WEIGHT INCREASED [None]
